FAERS Safety Report 8581703-4 (Version None)
Quarter: 2012Q2

REPORT INFORMATION
  Report Type: 
  Country: None (occurrence: None)
  Receive Date: 20120423
  Receipt Date: 20100720
  Transmission Date: 20120825
  Serious: Yes (Death, Hospitalization)
  Sender: FDA-Public Use
  Company Number: PHHY2010US47404

PATIENT
  Age: 70 Year
  Sex: Female
  Weight: 70.5 kg

DRUGS (1)
  1. EXJADE [Suspect]
     Indication: IRON OVERLOAD
     Dosage: UNK
     Dates: start: 20100108, end: 20100610

REACTIONS (1)
  - NEOPLASM MALIGNANT [None]
